FAERS Safety Report 5788269-2 (Version None)
Quarter: 2008Q2

REPORT INFORMATION
  Report Type: 
  Country: None (occurrence: None)
  Receive Date: 20080625
  Receipt Date: 20080618
  Transmission Date: 20081010
  Serious: Yes (Other)
  Sender: FDA-Public Use
  Company Number: US-GENENTECH-254465

PATIENT
  Sex: Female

DRUGS (13)
  1. XOLAIR [Suspect]
     Indication: ASTHMA
     Dosage: 375 MG, UNK
     Route: 058
     Dates: start: 20070628
  2. XOLAIR [Suspect]
     Dosage: 375 MG, UNK
     Route: 058
     Dates: start: 20080107
  3. SINGULAIR [Concomitant]
     Indication: ASTHMA
     Dosage: 10 MG, QD
     Route: 048
  4. SINGULAIR [Concomitant]
     Indication: HYPERSENSITIVITY
  5. ADVAIR DISKUS 100/50 [Concomitant]
     Indication: ASTHMA
     Dosage: UNK, BID
  6. ALBUTEROL [Concomitant]
     Indication: ASTHMA
     Dosage: UNK, PRN
  7. CYMBALTA [Concomitant]
     Indication: DEPRESSION
     Dosage: UNK, QD
  8. DUONEB [Concomitant]
     Indication: ASTHMA
     Dosage: UNK, QID
  9. ZANTAC [Concomitant]
     Indication: DRUG USE FOR UNKNOWN INDICATION
     Dosage: 150 MG, QD
     Route: 048
  10. NEXIUM [Concomitant]
     Indication: DRUG USE FOR UNKNOWN INDICATION
     Dosage: 40 MG, QD
     Route: 048
  11. ALLEGRA [Concomitant]
     Indication: HYPERSENSITIVITY
     Dosage: UNK, QD
     Route: 048
  12. AMITIZA [Concomitant]
     Indication: PREMEDICATION
  13. BENADRYL [Concomitant]
     Indication: PREMEDICATION
     Dosage: UNK, UNK
     Dates: start: 20070628

REACTIONS (3)
  - DYSPNOEA [None]
  - PRURITUS [None]
  - THROAT TIGHTNESS [None]
